FAERS Safety Report 9704072 (Version 1)
Quarter: 2013Q4

REPORT INFORMATION
  Report Type: Spontaneous
  Country: US (occurrence: None)
  Receive Date: 20131121
  Receipt Date: 20131121
  Transmission Date: 20140711
  Serious: Yes (Other)
  Sender: FDA-Public Use
  Company Number: None

PATIENT
  Sex: Female

DRUGS (2)
  1. NEUTROGENA NORWEGIAN FORMULA MOISTURE WRAP BODY [Suspect]
     Indication: DRY SKIN
     Dosage: TOPICAL
     Route: 061
  2. NEUTROGENA NORWEGIAN FORMULA HAND CREAM, FRAGRENCE [Concomitant]

REACTIONS (4)
  - Paraesthesia [None]
  - Adverse reaction [None]
  - Tremor [None]
  - Insomnia [None]
